FAERS Safety Report 20825991 (Version 1)
Quarter: 2022Q2

REPORT INFORMATION
  Report Type: Spontaneous
  Country: IT (occurrence: IT)
  Receive Date: 20220513
  Receipt Date: 20220513
  Transmission Date: 20220721
  Serious: Yes (Other)
  Sender: FDA-Public Use
  Company Number: None

PATIENT
  Age: 52 Year
  Sex: Male

DRUGS (1)
  1. IBUPROFEN [Suspect]
     Active Substance: IBUPROFEN
     Indication: Oropharyngeal pain
     Dosage: 600 MILLIGRAM, QD
     Route: 048
     Dates: start: 20220313, end: 20220316

REACTIONS (2)
  - Malaise [Recovering/Resolving]
  - Melaena [Recovering/Resolving]

NARRATIVE: CASE EVENT DATE: 20220316
